FAERS Safety Report 5559968-2 (Version None)
Quarter: 2007Q4

REPORT INFORMATION
  Report Type: 
  Country: None (occurrence: None)
  Receive Date: 20071214
  Receipt Date: 20071101
  Transmission Date: 20080405
  Serious: Yes (Hospitalization)
  Sender: FDA-Public Use
  Company Number: US-ABBOTT-07P-163-0421945-00

PATIENT
  Sex: Female
  Weight: 47.67 kg

DRUGS (5)
  1. HUMIRA [Suspect]
     Indication: RHEUMATOID ARTHRITIS
     Route: 058
     Dates: start: 20061001, end: 20070101
  2. HUMIRA [Suspect]
     Route: 058
     Dates: start: 20070201, end: 20070601
  3. METHOTREXATE [Suspect]
     Indication: DRUG USE FOR UNKNOWN INDICATION
  4. STEROID [Suspect]
     Indication: DRUG USE FOR UNKNOWN INDICATION
     Route: 030
  5. PREDNISONE [Concomitant]
     Indication: ADRENAL INSUFFICIENCY
     Route: 048

REACTIONS (3)
  - ARTHRITIS INFECTIVE [None]
  - PNEUMONIA [None]
  - SOFT TISSUE INFECTION [None]
